FAERS Safety Report 20996853 (Version 1)
Quarter: 2022Q2

REPORT INFORMATION
  Report Type: Report from Study
  Country: US (occurrence: US)
  Receive Date: 20220623
  Receipt Date: 20220623
  Transmission Date: 20220721
  Serious: Yes (Other)
  Sender: FDA-Public Use
  Company Number: US-BRISTOL-MYERS SQUIBB COMPANY-2022-056069

PATIENT
  Age: 88 Year
  Sex: Male
  Weight: 88.90 kg

DRUGS (3)
  1. POMALYST [Suspect]
     Active Substance: POMALIDOMIDE
     Indication: Plasma cell myeloma
     Dosage: FREQUENCY: DAILY 21 DAYS
     Route: 048
     Dates: start: 20191022
  2. POMALYST [Suspect]
     Active Substance: POMALIDOMIDE
     Indication: Plasma cell myeloma refractory
  3. POMALYST [Suspect]
     Active Substance: POMALIDOMIDE
     Indication: Illness

REACTIONS (2)
  - Illness [Unknown]
  - Nervous system disorder [Unknown]
